FAERS Safety Report 11037354 (Version 2)
Quarter: 2015Q2

REPORT INFORMATION
  Report Type: Spontaneous
  Country: IT (occurrence: None)
  Receive Date: 20150414
  Receipt Date: 20150625
  Transmission Date: 20150821
  Serious: Yes (Hospitalization)
  Sender: FDA-Public Use
  Company Number: 2015SGN00338

PATIENT
  Age: 28 Year
  Sex: Male
  Weight: 70 kg

DRUGS (6)
  1. VINBLASTINE (VINBLASTINE) INJECTION [Suspect]
     Active Substance: VINBLASTINE
     Indication: HODGKIN^S DISEASE
     Route: 042
     Dates: start: 20150108, end: 20150220
  2. PANTOPRAZOL (PANTOPRAZOLE SODIUM SESQUIHYDRATE) [Concomitant]
     Active Substance: PANTOPRAZOLE SODIUM
  3. BRENTUXIMAB VEDOTIN [Suspect]
     Active Substance: BRENTUXIMAB VEDOTIN
     Indication: HODGKIN^S DISEASE
     Route: 042
     Dates: start: 20150108, end: 20150220
  4. DOXORUBICIN (DOXORUBICIN) INJECTION [Suspect]
     Active Substance: DOXORUBICIN
     Indication: HODGKIN^S DISEASE
     Route: 042
     Dates: start: 20150108, end: 20150220
  5. ONDASETRON /00955301/ (ONDANSETRON) [Concomitant]
  6. DACARBAZINE (DACARBAZINE) INJECTION [Suspect]
     Active Substance: DACARBAZINE
     Indication: HODGKIN^S DISEASE
     Route: 042
     Dates: start: 20150108, end: 20150220

REACTIONS (8)
  - Hepatic steatosis [None]
  - Weight decreased [None]
  - Gastrointestinal hypermotility [None]
  - Vomiting [None]
  - Abdominal pain [None]
  - Hepatotoxicity [None]
  - Nausea [None]
  - Diarrhoea [None]

NARRATIVE: CASE EVENT DATE: 20150222
